FAERS Safety Report 6361489-4 (Version None)
Quarter: 2009Q3

REPORT INFORMATION
  Report Type: 
  Country: None (occurrence: None)
  Receive Date: 20090918
  Receipt Date: 20090910
  Transmission Date: 20100115
  Serious: Yes (Hospitalization)
  Sender: FDA-Public Use
  Company Number: BR-ABBOTT-09P-020-0596928-00

PATIENT
  Sex: Male

DRUGS (7)
  1. HUMIRA [Suspect]
     Indication: CROHN'S DISEASE
     Route: 058
     Dates: start: 20090817, end: 20090817
  2. HUMIRA [Suspect]
     Route: 058
     Dates: start: 20090708, end: 20090708
  3. AZATHIOPRINE [Concomitant]
     Indication: CROHN'S DISEASE
     Route: 048
  4. MESALAZINE [Concomitant]
     Indication: CROHN'S DISEASE
     Route: 048
  5. FOLIC ACID [Concomitant]
     Indication: DRUG USE FOR UNKNOWN INDICATION
     Route: 048
  6. CARBAMAZEPINE [Concomitant]
     Indication: EPILEPSY
     Route: 048
  7. FLUOXETINE [Concomitant]
     Indication: DEPRESSION
     Route: 048

REACTIONS (6)
  - ANAEMIA [None]
  - DIARRHOEA [None]
  - DIARRHOEA HAEMORRHAGIC [None]
  - MALNUTRITION [None]
  - PYREXIA [None]
  - WEIGHT DECREASED [None]
